FAERS Safety Report 23510231 (Version 3)
Quarter: 2024Q1

REPORT INFORMATION
  Report Type: Spontaneous
  Country: BE (occurrence: BE)
  Receive Date: 20240211
  Receipt Date: 20240326
  Transmission Date: 20240410
  Serious: Yes (Hospitalization, Other)
  Sender: FDA-Public Use
  Company Number: BE-UCBSA-2024005775

PATIENT
  Age: 78 Year
  Sex: Female
  Weight: 67 kg

DRUGS (18)
  1. EVENITY [Suspect]
     Active Substance: ROMOSOZUMAB-AQQG
     Indication: Osteoporosis
     Dosage: 210 MILLIGRAM, MONTHLY (QM)
     Route: 065
     Dates: start: 20220321, end: 20220617
  2. THYROXINE [Concomitant]
     Active Substance: LEVOTHYROXINE
     Indication: Product used for unknown indication
     Dosage: UNK
  3. ASPIRIN [Concomitant]
     Active Substance: ASPIRIN
     Indication: Product used for unknown indication
     Dosage: 80 MG 1 CP IN THE MORNING, ONCE DAILY (QD)
  4. SIMVASTATIN [Concomitant]
     Active Substance: SIMVASTATIN
     Indication: Product used for unknown indication
     Dosage: 20 MILLIGRAM, ONCE DAILY (QD)
  5. IMODIUM [Concomitant]
     Active Substance: LOPERAMIDE HYDROCHLORIDE
     Indication: Product used for unknown indication
     Dosage: 2 1X / DAY SN
  6. DAFALGAN [Concomitant]
     Active Substance: ACETAMINOPHEN
     Indication: Product used for unknown indication
     Dosage: 1 GRAM, SN
  7. LOSARTAN POTASSIUM [Concomitant]
     Active Substance: LOSARTAN POTASSIUM
     Indication: Product used for unknown indication
     Dosage: UNK, QD
  8. FLUOXETINE [Concomitant]
     Active Substance: FLUOXETINE HYDROCHLORIDE
     Indication: Product used for unknown indication
     Dosage: 20 MILLIGRAM, ONCE DAILY (QD), 1 TABLET IN THE MORNING
  9. SODIUM IODIDE I-131 [Concomitant]
     Active Substance: SODIUM IODIDE I-131
     Indication: Hypothyroidism
     Dosage: UNK
  10. Lortan [Concomitant]
     Indication: Hypertension
     Dosage: 100 MILLIGRAM, ONCE DAILY (QD)( 1 CP IN THE MORNING)
  11. LEVOTHYROXINE SODIUM [Concomitant]
     Active Substance: LEVOTHYROXINE SODIUM
     Indication: Hypothyroidism
     Dosage: 0 5 CP IN THE MORNING
  12. ALIZAPRIDE HYDROCHLORIDE [Concomitant]
     Active Substance: ALIZAPRIDE HYDROCHLORIDE
     Indication: Nausea
     Dosage: 50 MILLIGRAM, 3X/DAY (TID)
  13. AMISULPRIDE [Concomitant]
     Active Substance: AMISULPRIDE
     Indication: Product used for unknown indication
     Dosage: (50 MG I CP IN THE EVENING)1 DOSAGE FORM, ONCE DAILY (QD)
  14. D VITAL FORTE [Concomitant]
     Indication: Product used for unknown indication
     Dosage: 1 SACHET IN THE EVENING
  15. CHOLECALCIFEROL [Concomitant]
     Active Substance: CHOLECALCIFEROL
     Indication: Product used for unknown indication
     Dosage: UNK UNK, QWK
  16. BROMAZEPAM [Concomitant]
     Active Substance: BROMAZEPAM
     Indication: Product used for unknown indication
     Dosage: 6 MILLIGRAM, ONCE DAILY (QD) (AT BED TIME FOR 30 YEARS)
  17. Sulpiride ls [Concomitant]
     Indication: Product used for unknown indication
     Dosage: 200 MILLIGRAM 1 TIME
     Dates: end: 20220620
  18. HYDROXYZINE HYDROCHLORIDE [Concomitant]
     Active Substance: HYDROXYZINE HYDROCHLORIDE
     Indication: Product used for unknown indication
     Dosage: 150 (1/2 00)

REACTIONS (36)
  - General physical health deterioration [Unknown]
  - Hallucination, visual [Unknown]
  - Hallucination [Recovered/Resolved]
  - Vertebroplasty [Unknown]
  - Malaise [Not Recovered/Not Resolved]
  - Nausea [Unknown]
  - Hypoaesthesia [Unknown]
  - Stomatitis [Recovered/Resolved]
  - Ageusia [Recovering/Resolving]
  - Gait inability [Unknown]
  - Posture abnormal [Unknown]
  - Loss of personal independence in daily activities [Unknown]
  - White blood cell count increased [Unknown]
  - Soliloquy [Unknown]
  - Hypokinesia [Unknown]
  - Weight decreased [Unknown]
  - Chills [Unknown]
  - Ataxia [Unknown]
  - Dizziness [Not Recovered/Not Resolved]
  - Bedridden [Unknown]
  - Feeding disorder [Unknown]
  - Movement disorder [Unknown]
  - Decreased appetite [Unknown]
  - Headache [Unknown]
  - Tongue ulceration [Unknown]
  - Feeling abnormal [Unknown]
  - Feeling of body temperature change [Unknown]
  - Physiotherapy [Unknown]
  - Tachycardia [Unknown]
  - Hypertension [Unknown]
  - Anal incontinence [Unknown]
  - Diarrhoea [Unknown]
  - Lung disorder [Unknown]
  - Odynophagia [Unknown]
  - Tremor [Unknown]
  - Emotional disorder [Unknown]

NARRATIVE: CASE EVENT DATE: 20220101
